FAERS Safety Report 23254566 (Version 1)
Quarter: 2023Q4

REPORT INFORMATION
  Report Type: Spontaneous
  Country: US (occurrence: US)
  Receive Date: 20231202
  Receipt Date: 20231202
  Transmission Date: 20240109
  Serious: Yes (Death, Other)
  Sender: FDA-Public Use
  Company Number: US-drreddys-LIT/USA/23/0187585

PATIENT
  Age: 73 Year
  Sex: Female

DRUGS (3)
  1. ZOLEDRONIC ACID [Suspect]
     Active Substance: ZOLEDRONIC ACID
     Indication: Osteoporosis
  2. DENOSUMAB [Suspect]
     Active Substance: DENOSUMAB
     Indication: Osteoporosis
     Dates: start: 2013, end: 2018
  3. DENOSUMAB [Suspect]
     Active Substance: DENOSUMAB

REACTIONS (7)
  - Shock haemorrhagic [Fatal]
  - Pelvic fracture [Unknown]
  - Drug ineffective [Unknown]
  - Bone density decreased [Unknown]
  - Periprosthetic fracture [Unknown]
  - Cardiac failure chronic [Unknown]
  - Myelodysplastic syndrome [Unknown]

NARRATIVE: CASE EVENT DATE: 20230101
